FAERS Safety Report 6249197-1 (Version None)
Quarter: 2009Q2

REPORT INFORMATION
  Report Type: 
  Country: None (occurrence: None)
  Receive Date: 20090629
  Receipt Date: 20090624
  Transmission Date: 20091009
  Serious: Yes (Death, Hospitalization, Other)
  Sender: FDA-Public Use
  Company Number: PHHY2009BR25513

PATIENT
  Sex: Male

DRUGS (2)
  1. EXFORGE [Suspect]
     Indication: HYPERTENSION
     Dosage: 160/10 MG
     Dates: start: 20071201
  2. VYTORIN [Concomitant]
     Indication: BLOOD CHOLESTEROL

REACTIONS (6)
  - ABDOMINAL PAIN UPPER [None]
  - ACUTE MYOCARDIAL INFARCTION [None]
  - DYSLIPIDAEMIA [None]
  - HYPERTENSION [None]
  - INFARCTION [None]
  - SEDATION [None]
